FAERS Safety Report 5740457-7 (Version None)
Quarter: 2008Q2

REPORT INFORMATION
  Report Type: 
  Country: None (occurrence: None)
  Receive Date: 20080513
  Receipt Date: 20080501
  Transmission Date: 20081010
  Serious: Yes (Hospitalization)
  Sender: FDA-Public Use
  Company Number: 2008BI010233

PATIENT
  Age: 23 Year
  Sex: Female

DRUGS (1)
  1. AVONEX [Suspect]
     Indication: MULTIPLE SCLEROSIS
     Dosage: 30 UG;QW;IM
     Route: 030
     Dates: start: 20020601

REACTIONS (3)
  - CENTRAL NERVOUS SYSTEM LESION [None]
  - HEADACHE [None]
  - HYPOAESTHESIA [None]
